FAERS Safety Report 8900590 (Version 1)
Quarter: 2012Q4

REPORT INFORMATION
  Report Type: 
  Country: CA (occurrence: CA)
  Receive Date: 20121109
  Receipt Date: 20121109
  Transmission Date: 20130627
  Serious: Yes (Other)
  Sender: FDA-Public Use
  Company Number: CA-ROCHE-1152319

PATIENT
  Sex: Female

DRUGS (1)
  1. LUCENTIS [Suspect]
     Indication: DIABETIC RETINAL OEDEMA
     Route: 050
     Dates: end: 20120509

REACTIONS (5)
  - Renal disorder [Unknown]
  - Depression [Unknown]
  - Eye disorder [Unknown]
  - Malaise [Unknown]
  - Nasopharyngitis [Unknown]
